FAERS Safety Report 6121488-4 (Version None)
Quarter: 2009Q1

REPORT INFORMATION
  Report Type: 
  Country: None (occurrence: None)
  Receive Date: 20090313
  Receipt Date: 20090302
  Transmission Date: 20090719
  Serious: Yes (Hospitalization, Other)
  Sender: FDA-Public Use
  Company Number: 57266

PATIENT
  Sex: Male
  Weight: 108 kg

DRUGS (1)
  1. DAUNORUBICIN HCL [Suspect]
     Indication: ACUTE MYELOID LEUKAEMIA
     Dosage: 1-3 DAYS

REACTIONS (7)
  - BLOOD POTASSIUM INCREASED [None]
  - DIALYSIS [None]
  - DYSPNOEA [None]
  - ENTEROCOCCAL INFECTION [None]
  - HEPATIC ISCHAEMIA [None]
  - MULTI-ORGAN FAILURE [None]
  - RENAL FAILURE ACUTE [None]
